FAERS Safety Report 16978816 (Version 1)
Quarter: 2019Q4

REPORT INFORMATION
  Report Type: Spontaneous
  Country: US (occurrence: US)
  Receive Date: 20191031
  Receipt Date: 20191031
  Transmission Date: 20200122
  Serious: Yes (Other)
  Sender: FDA-Public Use
  Company Number: US-PFIZER INC-2019469678

PATIENT
  Age: 55 Year
  Sex: Female

DRUGS (5)
  1. DILTIAZEM. [Concomitant]
     Active Substance: DILTIAZEM
     Indication: HYPERTENSION
     Dosage: UNK (DRIP)
  2. DILTIAZEM. [Concomitant]
     Active Substance: DILTIAZEM
     Indication: TACHYCARDIA
  3. DOPAMINE HCL [Suspect]
     Active Substance: DOPAMINE HYDROCHLORIDE
     Indication: HYPOTENSION
     Dosage: UNK, (DRIP)
  4. NOREPINEPHRINE BITARTRATE. [Suspect]
     Active Substance: NOREPINEPHRINE BITARTRATE
     Indication: HYPOTENSION
  5. NOREPINEPHRINE BITARTRATE. [Suspect]
     Active Substance: NOREPINEPHRINE BITARTRATE
     Indication: PULMONARY OEDEMA
     Dosage: UNK, (DRIP)

REACTIONS (2)
  - Drug ineffective [Recovered/Resolved]
  - Cardiomyopathy [Recovered/Resolved]
